FAERS Safety Report 4360007-X (Version None)
Quarter: 2004Q2

REPORT INFORMATION
  Report Type: 
  Country: None (occurrence: None)
  Receive Date: 20040518
  Receipt Date: 20040518
  Transmission Date: 20050107
  Serious: No
  Sender: FDA-Public Use
  Company Number: None

PATIENT
  Age: 75 Year
  Sex: Male

DRUGS (1)
  1. LISINOPRIL [Suspect]
     Dosage: 10 MG
     Dates: start: 20040119, end: 20040308

REACTIONS (5)
  - EPIDIDYMITIS [None]
  - PAIN [None]
  - POISONING [None]
  - RASH [None]
  - RASH PAPULAR [None]
